FAERS Safety Report 21385175 (Version 1)
Quarter: 2022Q3

REPORT INFORMATION
  Report Type: Spontaneous
  Country: US (occurrence: US)
  Receive Date: 20220928
  Receipt Date: 20220928
  Transmission Date: 20221027
  Serious: No
  Sender: FDA-Public Use
  Company Number: US-009507513-2209USA001213

PATIENT
  Sex: Male

DRUGS (2)
  1. INTRON A [Suspect]
     Active Substance: INTERFERON ALFA-2B
     Indication: Retinal tear
     Dosage: UNK, COMPOUND INTO A EYE DROP
     Route: 047
     Dates: start: 2019
  2. INTRON A [Suspect]
     Active Substance: INTERFERON ALFA-2B
     Indication: Herpes zoster

REACTIONS (2)
  - Wrong technique in product usage process [Unknown]
  - No adverse event [Unknown]

NARRATIVE: CASE EVENT DATE: 20190101
